FAERS Safety Report 7126260-4 (Version None)
Quarter: 2010Q4

REPORT INFORMATION
  Report Type: 
  Country: None (occurrence: None)
  Receive Date: 20101115
  Receipt Date: 20101104
  Transmission Date: 20110411
  Serious: Yes (Death)
  Sender: FDA-Public Use
  Company Number: 000625310-AKO-5040

PATIENT
  Age: 63 Year
  Sex: Male

DRUGS (7)
  1. AK-FLUOR (FLUORESCEIN INJECTIO, USP) 10% - AKORN,INC [Suspect]
     Indication: DIABETIC RETINOPATHY
     Dosage: OT, IV
     Route: 042
     Dates: start: 20100927, end: 20100927
  2. GLUCOPHAGE [Concomitant]
  3. ZOCOR [Concomitant]
  4. COREG [Concomitant]
  5. AMLODIPINE [Concomitant]
  6. FOSAMAX [Concomitant]
  7. ASPIRIN [Concomitant]

REACTIONS (2)
  - CARDIAC DISORDER [None]
  - FEELING ABNORMAL [None]
